FAERS Safety Report 22818724 (Version 2)
Quarter: 2023Q4

REPORT INFORMATION
  Report Type: Spontaneous
  Country: FR (occurrence: FR)
  Receive Date: 20230814
  Receipt Date: 20231225
  Transmission Date: 20240110
  Serious: Yes (Hospitalization)
  Sender: FDA-Public Use
  Company Number: None

PATIENT
  Age: 78 Year
  Sex: Female

DRUGS (6)
  1. VINCRISTINE [Suspect]
     Active Substance: VINCRISTINE
     Indication: Lymphoma
     Dosage: NR?TTT C1
     Route: 065
     Dates: start: 20230220
  2. CYCLOPHOSPHAMIDE [Suspect]
     Active Substance: CYCLOPHOSPHAMIDE
     Indication: Lymphoma
     Dosage: NR?TTT C1
     Route: 065
     Dates: start: 20230220
  3. DOXORUBICIN [Suspect]
     Active Substance: DOXORUBICIN
     Indication: Lymphoma
     Dosage: NR?TTT C1
     Route: 065
     Dates: start: 20230220
  4. CIPROFLOXACIN [Suspect]
     Active Substance: CIPROFLOXACIN
     Indication: Infection
     Dosage: NR
     Route: 065
     Dates: start: 20230310, end: 20230316
  5. RITUXIMAB [Suspect]
     Active Substance: RITUXIMAB
     Indication: Lymphoma
     Dosage: NR?TT FOR THE C1
     Route: 065
     Dates: start: 20230220
  6. AZACTAM [Suspect]
     Active Substance: AZTREONAM
     Indication: Lymphadenopathy
     Route: 051
     Dates: start: 20230307, end: 20230310

REACTIONS (4)
  - Pancytopenia [Not Recovered/Not Resolved]
  - Rash [Recovered/Resolved]
  - Acute kidney injury [Not Recovered/Not Resolved]
  - Pruritus [Recovered/Resolved]

NARRATIVE: CASE EVENT DATE: 20230308
